FAERS Safety Report 5036596-9 (Version None)
Quarter: 2006Q2

REPORT INFORMATION
  Report Type: 
  Country: None (occurrence: None)
  Receive Date: 20060614
  Receipt Date: 20060504
  Transmission Date: 20061013
  Serious: Yes (Hospitalization)
  Sender: FDA-Public Use
  Company Number: BDI-008216

PATIENT
  Age: 66 Year
  Sex: Male
  Weight: 75 kg

DRUGS (3)
  1. MULTIHANCE [Suspect]
     Indication: ANGIOGRAM
     Dosage: 20 ML ONCE IV
     Route: 042
     Dates: start: 20060501, end: 20060501
  2. MULTIHANCE [Suspect]
     Indication: INTERMITTENT CLAUDICATION
     Dosage: 20 ML ONCE IV
     Route: 042
     Dates: start: 20060501, end: 20060501
  3. MULTIHANCE [Suspect]
     Indication: PAIN IN EXTREMITY
     Dosage: 20 ML ONCE IV
     Route: 042
     Dates: start: 20060501, end: 20060501

REACTIONS (1)
  - ANAPHYLACTIC SHOCK [None]
